FAERS Safety Report 5825594-0 (Version None)
Quarter: 2008Q3

REPORT INFORMATION
  Report Type: 
  Country: None (occurrence: None)
  Receive Date: 20080729
  Receipt Date: 20080722
  Transmission Date: 20090109
  Serious: Yes (Life-Threatening, Other)
  Sender: FDA-Public Use
  Company Number: A0735828A

PATIENT
  Age: 50 Year
  Sex: Male
  Weight: 96.4 kg

DRUGS (5)
  1. VERAMYST [Suspect]
     Dosage: 4SPR SINGLE DOSE
     Route: 045
     Dates: start: 20080626, end: 20080626
  2. TORADOL [Suspect]
     Indication: PAIN
     Dosage: 60MG AS REQUIRED
     Route: 030
     Dates: start: 20070716, end: 20080626
  3. TALWIN NX [Concomitant]
  4. ANAPROX DS [Concomitant]
  5. ALLERGY MEDICATION [Concomitant]

REACTIONS (14)
  - ANAPHYLACTIC REACTION [None]
  - BLOOD PRESSURE DECREASED [None]
  - BLOOD PRESSURE SYSTOLIC DECREASED [None]
  - CIRCULATORY COLLAPSE [None]
  - DIARRHOEA [None]
  - DIZZINESS [None]
  - HYPOTENSION [None]
  - MYDRIASIS [None]
  - NAUSEA [None]
  - PALLOR [None]
  - PRURITUS GENERALISED [None]
  - RETCHING [None]
  - THROAT TIGHTNESS [None]
  - VOMITING [None]
